FAERS Safety Report 8800528 (Version 2)
Quarter: 2012Q4

REPORT INFORMATION
  Report Type: 
  Country: DE (occurrence: DE)
  Receive Date: 20120921
  Receipt Date: 20121011
  Transmission Date: 20130627
  Serious: Yes (Hospitalization)
  Sender: FDA-Public Use
  Company Number: DE-BRISTOL-MYERS SQUIBB COMPANY-16954307

PATIENT
  Age: 73 Year
  Sex: Female

DRUGS (3)
  1. ONGLYZA TABS 5 MG [Suspect]
     Route: 048
  2. METFORMIN [Suspect]
  3. LANTUS [Concomitant]

REACTIONS (6)
  - General physical health deterioration [Recovering/Resolving]
  - Transaminases increased [Recovering/Resolving]
  - C-reactive protein increased [Recovering/Resolving]
  - Procalcitonin increased [Recovering/Resolving]
  - Leukocytosis [Recovering/Resolving]
  - Gamma-glutamyltransferase increased [Recovering/Resolving]
